FAERS Safety Report 5344263-7 (Version None)
Quarter: 2007Q2

REPORT INFORMATION
  Report Type: 
  Country: None (occurrence: None)
  Receive Date: 20070416
  Receipt Date: 20070105
  Transmission Date: 20071010
  Serious: No
  Sender: FDA-Public Use
  Company Number: 2007SP000061

PATIENT
  Age: 34 Year
  Sex: Female
  Weight: 56.6996 kg

DRUGS (12)
  1. LUNESTA [Suspect]
     Indication: INSOMNIA
     Dosage: SEE IMAGE
     Route: 048
     Dates: start: 20050101, end: 20050101
  2. LUNESTA [Suspect]
     Indication: INSOMNIA
     Dosage: SEE IMAGE
     Route: 048
     Dates: start: 20060101
  3. LUNESTA [Suspect]
     Indication: INSOMNIA
     Dosage: SEE IMAGE
     Route: 048
     Dates: start: 20060601
  4. AMBIEN [Suspect]
     Indication: INSOMNIA
     Dosage: ORAL
     Route: 048
     Dates: start: 20061101, end: 20061101
  5. EFFEXOR [Concomitant]
  6. ADDERALL 10 [Concomitant]
  7. NADOLOL [Concomitant]
  8. CALAN [Concomitant]
  9. RIZATRIPTAN BENZOATE [Concomitant]
  10. RELPAX [Concomitant]
  11. ENDOCET [Concomitant]
  12. VALIUM [Concomitant]

REACTIONS (3)
  - DYSGEUSIA [None]
  - HANGOVER [None]
  - INITIAL INSOMNIA [None]
